FAERS Safety Report 8401432 (Version 3)
Quarter: 2013Q2

REPORT INFORMATION
  Report Type: Spontaneous
  Country: JP (occurrence: JP)
  Receive Date: 20120210
  Receipt Date: 20130418
  Transmission Date: 20140414
  Serious: Yes (Disabling)
  Sender: FDA-Public Use
  Company Number: JP-ALLERGAN-1201789US

PATIENT
  Age: 39 Year
  Sex: Male

DRUGS (1)
  1. LUMIGAN [Suspect]
     Indication: GLAUCOMATOCYCLITIC CRISES
     Dosage: 2 GTT, QPM
     Route: 047
     Dates: start: 20111207, end: 20120118

REACTIONS (2)
  - Glaucomatocyclitic crises [Recovered/Resolved]
  - Conjunctival hyperaemia [Recovered/Resolved]
